FAERS Safety Report 17756870 (Version 8)
Quarter: 2020Q3

REPORT INFORMATION
  Report Type: Report from Study
  Country: IN (occurrence: IN)
  Receive Date: 20200507
  Receipt Date: 20200707
  Transmission Date: 20201102
  Serious: Yes (Other)
  Sender: FDA-Public Use
  Company Number: NVSC2020IN016231

PATIENT
  Age: 50 Year
  Sex: Male
  Weight: 64.8 kg

DRUGS (2)
  1. GALVUS MET [Suspect]
     Active Substance: METFORMIN HYDROCHLORIDE\VILDAGLIPTIN
     Indication: DIABETES MELLITUS
     Dosage: 1 DF, BID (1?0?1, POST MEAL) (SINCE 4 YEARS)
     Route: 048
  2. AMLOPRESS [Concomitant]
     Indication: DIABETES MELLITUS
     Dosage: 1 DF, QD,(1?0?0), (STARTED SINCE 4 YEARS)
     Route: 048

REACTIONS (9)
  - Lipids abnormal [Unknown]
  - Blood pressure decreased [Unknown]
  - Hyperglycaemia [Unknown]
  - Blood creatinine decreased [Unknown]
  - Glycosylated haemoglobin increased [Unknown]
  - Blood pressure increased [Unknown]
  - Blood uric acid decreased [Unknown]
  - Overweight [Unknown]
  - Intervertebral disc protrusion [Unknown]

NARRATIVE: CASE EVENT DATE: 20200116
